FAERS Safety Report 6632196-5 (Version None)
Quarter: 2010Q1

REPORT INFORMATION
  Report Type: 
  Country: None (occurrence: None)
  Receive Date: 20100312
  Receipt Date: 20100305
  Transmission Date: 20100710
  Serious: Yes (Other)
  Sender: FDA-Public Use
  Company Number: US-MYLANLABS-2009S1021279

PATIENT
  Age: 30 Year
  Sex: Female

DRUGS (6)
  1. SOTRET [Suspect]
     Dates: start: 20090630
  2. AMNESTEEM [Suspect]
  3. CLARAVIS [Suspect]
  4. SOTRET [Suspect]
  5. AMNESTEEM [Suspect]
     Dates: end: 20091210
  6. ORAL CONTRACEPTIVE NOS [Concomitant]

REACTIONS (1)
  - DRUG EXPOSURE DURING PREGNANCY [None]
